FAERS Safety Report 5061389-6 (Version None)
Quarter: 2006Q3

REPORT INFORMATION
  Report Type: 
  Country: None (occurrence: None)
  Receive Date: 20060719
  Receipt Date: 20060719
  Transmission Date: 20061208
  Serious: Yes (Hospitalization)
  Sender: FDA-Public Use
  Company Number: None

PATIENT
  Age: 70 Year
  Sex: Male

DRUGS (15)
  1. FOSINOPRIL SODIUM [Suspect]
     Indication: HYPERTENSION
     Dosage: 40 MG BID
     Dates: start: 19990801
  2. FUROSEMIDE [Suspect]
     Dosage: 80 MG BID
     Dates: start: 20011101
  3. NAPROXEN [Suspect]
     Indication: PAIN
     Dosage: 500 MG BID
     Dates: start: 19950701
  4. ZOLOFT [Concomitant]
  5. HYDRALAZINE HCL [Concomitant]
  6. TERAZOSIN HCL [Concomitant]
  7. ZOCOR [Concomitant]
  8. ISOSORBIDE DINITRATE [Concomitant]
  9. POTASSIUM CHLORIDE [Concomitant]
  10. SPIRONOLACTONE [Concomitant]
  11. LORTAB [Concomitant]
  12. FES04 [Concomitant]
  13. ASPIRIN [Concomitant]
  14. FELODIPINE [Concomitant]
  15. NPH INSULIN [Concomitant]

REACTIONS (1)
  - RENAL FAILURE ACUTE [None]
